FAERS Safety Report 18826050 (Version 1)
Quarter: 2021Q1

REPORT INFORMATION
  Report Type: Spontaneous
  Country: US (occurrence: US)
  Receive Date: 20210202
  Receipt Date: 20210202
  Transmission Date: 20210419
  Serious: No
  Sender: FDA-Public Use
  Company Number: US-APOTEX-2021AP002508

PATIENT

DRUGS (1)
  1. ENOXAPARIN SODIUM INJECTION [Suspect]
     Active Substance: ENOXAPARIN SODIUM
     Indication: PRODUCT USED FOR UNKNOWN INDICATION

REACTIONS (3)
  - Device use confusion [Not Recovered/Not Resolved]
  - Product lot number issue [Not Recovered/Not Resolved]
  - Product expiration date issue [Not Recovered/Not Resolved]
